FAERS Safety Report 9434900 (Version 1)
Quarter: 2013Q3

REPORT INFORMATION
  Report Type: Spontaneous
  Country: CA (occurrence: CA)
  Receive Date: 20130801
  Receipt Date: 20130801
  Transmission Date: 20140515
  Serious: Yes (Hospitalization, Other)
  Sender: FDA-Public Use
  Company Number: CA-VERTEX PHARMACEUTICALS INC-2013-008441

PATIENT
  Age: 66 Year
  Sex: Male

DRUGS (10)
  1. INCIVEK [Suspect]
     Indication: HEPATITIS C
     Dosage: 750 MG, TID
     Route: 048
  2. PEGASYS [Suspect]
     Indication: HEPATITIS C
     Dosage: 180 ?G, QW
  3. RIBAVIRIN [Suspect]
     Indication: HEPATITIS C
     Dosage: UNK
  4. ASPIRIN [Concomitant]
  5. GLUCONORM [Concomitant]
  6. HYDROCHLOROTHIAZIDE [Concomitant]
  7. METFORMIN [Concomitant]
  8. NORVASC [Concomitant]
  9. RAMIPRIL [Concomitant]
  10. SIMVASTATIN [Concomitant]

REACTIONS (8)
  - Prostate cancer [Unknown]
  - Lumbar vertebral fracture [Unknown]
  - Fall [Unknown]
  - Hypotension [Unknown]
  - Dyspepsia [Unknown]
  - Activities of daily living impaired [Unknown]
  - Anaemia [Unknown]
  - Rectal haemorrhage [Unknown]
